FAERS Safety Report 4517438-4 (Version None)
Quarter: 2004Q4

REPORT INFORMATION
  Report Type: 
  Country: None (occurrence: None)
  Receive Date: 20041022
  Receipt Date: 20040722
  Transmission Date: 20050328
  Serious: Yes (Other)
  Sender: FDA-Public Use
  Company Number: 2004027486

PATIENT
  Age: 47 Year
  Sex: Female

DRUGS (4)
  1. RELPAX [Suspect]
     Indication: MIGRAINE
     Dosage: 40 (40 MG), ORAL
     Route: 048
     Dates: start: 20040331
  2. MULTIVITAMINS (ASCORBIC ACID, ERGOCALCIFEROL, FOLIC ACID, NICOTINAMIDE [Concomitant]
  3. CALCIUM D3 ^STADA^ (CALCIUM, COLECALCIFEROL) [Concomitant]
  4. ALL OTHER  NON-THERAPEUTIC PRODUCTS (ALL OTHER NON-THERAPEUTIC PRODUCT [Concomitant]

REACTIONS (3)
  - DIZZINESS [None]
  - PAIN EXACERBATED [None]
  - SYNCOPE [None]
